FAERS Safety Report 16874139 (Version 1)
Quarter: 2019Q4

REPORT INFORMATION
  Report Type: Spontaneous
  Country: US (occurrence: US)
  Receive Date: 20191001
  Receipt Date: 20191001
  Transmission Date: 20200122
  Serious: Yes (Hospitalization)
  Sender: FDA-Public Use
  Company Number: US-TEVA-2019-US-1116326

PATIENT
  Sex: Male

DRUGS (9)
  1. CEFTRIAXONE. [Concomitant]
     Active Substance: CEFTRIAXONE
     Indication: BACTERAEMIA
     Route: 042
  2. FLUCONAZOLE. [Concomitant]
     Active Substance: FLUCONAZOLE
     Indication: FUNGAEMIA
     Route: 048
  3. DAPTOMYCIN. [Concomitant]
     Active Substance: DAPTOMYCIN
     Indication: BACTERAEMIA
     Route: 065
  4. CHLORAMPHENICOL [Interacting]
     Active Substance: CHLORAMPHENICOL
     Indication: BACTERAEMIA
     Route: 042
  5. METRONIDAZOLE. [Concomitant]
     Active Substance: METRONIDAZOLE
     Indication: BACTERAEMIA
     Route: 048
  6. MEROPENEM. [Concomitant]
     Active Substance: MEROPENEM
     Indication: BACTERAEMIA
     Route: 065
  7. CICLOSPORIN [Suspect]
     Active Substance: CYCLOSPORINE
     Indication: IMMUNOSUPPRESSANT DRUG THERAPY
     Route: 065
  8. MOXIFLOXACIN. [Interacting]
     Active Substance: MOXIFLOXACIN
     Indication: BACTERAEMIA
     Route: 048
  9. TIGECYCLINE. [Suspect]
     Active Substance: TIGECYCLINE
     Indication: BACTERAEMIA
     Route: 042

REACTIONS (11)
  - Perihepatic abscess [Unknown]
  - Candida infection [Unknown]
  - Enterococcal infection [Unknown]
  - Drug interaction [Unknown]
  - Bacteraemia [Unknown]
  - Streptococcal infection [Unknown]
  - Device related infection [Unknown]
  - Pathogen resistance [Unknown]
  - Stomatococcal infection [Unknown]
  - Alpha haemolytic streptococcal infection [Unknown]
  - Fungaemia [Unknown]
